FAERS Safety Report 8153659-X (Version None)
Quarter: 2012Q1

REPORT INFORMATION
  Report Type: 
  Country: None (occurrence: None)
  Receive Date: 20120221
  Receipt Date: 20120215
  Transmission Date: 20120608
  Serious: Yes (Death)
  Sender: FDA-Public Use
  Company Number: US-CUBIST-2012S1000186

PATIENT
  Sex: Male

DRUGS (3)
  1. CEFTRIAXONE [Concomitant]
     Indication: PRODUCT USED FOR UNKNOWN INDICATION
  2. CUBICIN [Suspect]
     Indication: STAPHYLOCOCCAL INFECTION
  3. VANCOMYCIN [Concomitant]
     Indication: URINARY TRACT INFECTION

REACTIONS (3)
  - ACUTE RESPIRATORY FAILURE [None]
  - GASTROINTESTINAL HAEMORRHAGE [None]
  - DEATH [None]
